FAERS Safety Report 19649005 (Version 2)
Quarter: 2021Q3

REPORT INFORMATION
  Report Type: Spontaneous
  Country: RU (occurrence: RU)
  Receive Date: 20210803
  Receipt Date: 20210827
  Transmission Date: 20211014
  Serious: Yes (Hospitalization)
  Sender: FDA-Public Use
  Company Number: RU-ORGANON-O2108RUS000131

PATIENT
  Age: 32 Year
  Sex: Male
  Weight: 58 kg

DRUGS (1)
  1. BETAMETHASONE DIPROPIONATE (+) BETAMETHASONE SODIUM PHOSPHATE [Suspect]
     Active Substance: BETAMETHASONE DIPROPIONATE\BETAMETHASONE SODIUM PHOSPHATE
     Indication: DERMATITIS ATOPIC
     Dosage: 1 ML, I.V, ONCE
     Route: 042

REACTIONS (1)
  - Rash pustular [Recovered/Resolved]
